FAERS Safety Report 8899518 (Version 1)
Quarter: 2012Q4

REPORT INFORMATION
  Report Type: 
  Country: US (occurrence: US)
  Receive Date: 20121108
  Receipt Date: 20121108
  Transmission Date: 20130627
  Serious: No
  Sender: FDA-Public Use
  Company Number: US-AMGEN-USASP2012035891

PATIENT
  Age: 48 Year
  Sex: Female
  Weight: 55.33 kg

DRUGS (7)
  1. ENBREL [Suspect]
     Indication: PRODUCT USED FOR UNKNOWN INDICATION
     Dosage: 50 mg, qwk
  2. FOLIC ACID W/VITAMIN B12 [Concomitant]
     Dosage: UNK
  3. CALCIUM MAGNESIUM [Concomitant]
     Dosage: UNK
  4. VITAMIN B6 [Concomitant]
     Dosage: 50 mg, UNK
  5. CENTRUM                            /00554501/ [Concomitant]
     Dosage: UNK
  6. VITAMIN D /00107901/ [Concomitant]
     Dosage: UNK
  7. ISONIAZID [Concomitant]
     Dosage: 300 mg, UNK

REACTIONS (1)
  - Back pain [Unknown]
